FAERS Safety Report 15929789 (Version 1)
Quarter: 2019Q1

REPORT INFORMATION
  Report Type: Report from Study
  Country: PK (occurrence: PK)
  Receive Date: 20190206
  Receipt Date: 20190206
  Transmission Date: 20190417
  Serious: Yes (Death, Other)
  Sender: FDA-Public Use
  Company Number: PHHY2019PK025347

PATIENT
  Sex: Male
  Weight: 69 kg

DRUGS (1)
  1. AFINITOR [Suspect]
     Active Substance: EVEROLIMUS
     Indication: RENAL CELL CARCINOMA
     Dosage: 10 MG, QD
     Route: 048
     Dates: start: 20180608

REACTIONS (7)
  - Pain [Fatal]
  - Weight decreased [Fatal]
  - Postoperative wound infection [Unknown]
  - Mouth ulceration [Fatal]
  - Ill-defined disorder [Unknown]
  - Decreased appetite [Fatal]
  - Pyrexia [Fatal]
